FAERS Safety Report 12619790 (Version 2)
Quarter: 2017Q1

REPORT INFORMATION
  Report Type: Spontaneous
  Country: FR (occurrence: FR)
  Receive Date: 20160803
  Receipt Date: 20170120
  Transmission Date: 20170428
  Serious: Yes (Hospitalization, Other)
  Sender: FDA-Public Use
  Company Number: FR-ASTRAZENECA-2016SE82599

PATIENT
  Age: 863 Month
  Sex: Female

DRUGS (6)
  1. LYNPARZA [Suspect]
     Active Substance: OLAPARIB
     Indication: OVARIAN EPITHELIAL CANCER
     Route: 048
     Dates: start: 20160322, end: 20160602
  2. LYNPARZA [Suspect]
     Active Substance: OLAPARIB
     Indication: OVARIAN EPITHELIAL CANCER
     Dosage: LOWERED DOSE OF 100 MG IN THE MORNING AND IN THE EVENING CORRESPONDING TO 2 CAPSULES IN THE MORNI...
     Route: 048
     Dates: start: 20161012
  3. LYNPARZA [Suspect]
     Active Substance: OLAPARIB
     Indication: OVARIAN CANCER STAGE III
     Route: 048
     Dates: start: 20160322, end: 20160602
  4. LYNPARZA [Suspect]
     Active Substance: OLAPARIB
     Indication: OVARIAN CANCER STAGE III
     Route: 048
     Dates: start: 20160908
  5. LYNPARZA [Suspect]
     Active Substance: OLAPARIB
     Indication: OVARIAN EPITHELIAL CANCER
     Route: 048
     Dates: start: 20160908
  6. LYNPARZA [Suspect]
     Active Substance: OLAPARIB
     Indication: OVARIAN CANCER STAGE III
     Dosage: LOWERED DOSE OF 100 MG IN THE MORNING AND IN THE EVENING CORRESPONDING TO 2 CAPSULES IN THE MORNI...
     Route: 048
     Dates: start: 20161012

REACTIONS (4)
  - Inflammation [Unknown]
  - Pyrexia [Recovered/Resolved]
  - Cholelithiasis [Unknown]
  - Neutropenia [Recovered/Resolved]

NARRATIVE: CASE EVENT DATE: 201605
